FAERS Safety Report 8871689 (Version 2)
Quarter: 2013Q1

REPORT INFORMATION
  Report Type: Spontaneous
  Country: US (occurrence: US)
  Receive Date: 20121029
  Receipt Date: 20130109
  Transmission Date: 20140127
  Serious: Yes (Hospitalization, Other)
  Sender: FDA-Public Use
  Company Number: PHEH2012US020756

PATIENT
  Sex: Female

DRUGS (5)
  1. DIOVAN [Suspect]
     Indication: HYPERTENSION
     Dosage: 1 DF, QD
     Route: 048
  2. LAMICTAL [Concomitant]
  3. NEXIUM [Concomitant]
  4. MYSOLINE [Concomitant]
  5. CARAFATE [Concomitant]

REACTIONS (4)
  - Prescribed overdose [Unknown]
  - Convulsion [Unknown]
  - Injury [Unknown]
  - Drug ineffective [Unknown]
